FAERS Safety Report 17270609 (Version 2)
Quarter: 2020Q1

REPORT INFORMATION
  Report Type: Spontaneous
  Country: CN (occurrence: CN)
  Receive Date: 20200114
  Receipt Date: 20200120
  Transmission Date: 20200409
  Serious: Yes (Other)
  Sender: FDA-Public Use
  Company Number: CN-ELI_LILLY_AND_COMPANY-CN202001001596

PATIENT
  Sex: Male

DRUGS (7)
  1. ZYPREXA [Suspect]
     Active Substance: OLANZAPINE
     Indication: SCHIZOPHRENIA
     Dosage: 10 MG, DAILY
     Route: 048
     Dates: start: 2010
  2. ZYPREXA [Suspect]
     Active Substance: OLANZAPINE
     Dosage: UNK, DAILY
     Route: 048
     Dates: start: 2018, end: 201910
  3. ZYPREXA [Suspect]
     Active Substance: OLANZAPINE
     Dosage: UNK, DAILY
     Route: 048
     Dates: start: 201910
  4. SOLIAN [Concomitant]
     Active Substance: AMISULPRIDE
     Indication: PRODUCT USED FOR UNKNOWN INDICATION
     Dosage: UNK, UNKNOWN
     Route: 065
  5. ZYPREXA [Suspect]
     Active Substance: OLANZAPINE
     Dosage: UNK, DAILY
     Route: 048
     Dates: start: 201910
  6. ZYPREXA [Suspect]
     Active Substance: OLANZAPINE
     Dosage: UNK, UNKNOWN
     Route: 048
     Dates: end: 2018
  7. ZYPREXA [Suspect]
     Active Substance: OLANZAPINE
     Dosage: UNK UNK, DAILY
     Route: 048
     Dates: start: 2018, end: 201910

REACTIONS (6)
  - Insomnia [Unknown]
  - Mental disorder [Unknown]
  - Drug ineffective [Unknown]
  - Insomnia [Unknown]
  - Logorrhoea [Unknown]
  - Prescribed overdose [Unknown]

NARRATIVE: CASE EVENT DATE: 2018
